FAERS Safety Report 19367251 (Version 1)
Quarter: 2021Q2

REPORT INFORMATION
  Report Type: Report from Study
  Country: BR (occurrence: BR)
  Receive Date: 20210603
  Receipt Date: 20210603
  Transmission Date: 20210717
  Serious: Yes (Other)
  Sender: FDA-Public Use
  Company Number: NVSC2021BR121488

PATIENT

DRUGS (2)
  1. COSENTYX [Suspect]
     Active Substance: SECUKINUMAB
     Indication: ANKYLOSING SPONDYLITIS
     Dosage: 150 MG
     Route: 065
     Dates: start: 201904
  2. COSENTYX [Suspect]
     Active Substance: SECUKINUMAB
     Dosage: UNK
     Route: 065
     Dates: start: 202003

REACTIONS (7)
  - Fistula inflammation [Recovered/Resolved]
  - Eye inflammation [Recovered/Resolved]
  - Lung disorder [Recovering/Resolving]
  - COVID-19 [Recovered/Resolved]
  - Abscess limb [Recovered/Resolved]
  - Tuberculosis [Recovering/Resolving]
  - Anal fistula [Recovered/Resolved]

NARRATIVE: CASE EVENT DATE: 2020
